FAERS Safety Report 24523888 (Version 2)
Quarter: 2024Q4

REPORT INFORMATION
  Report Type: Spontaneous
  Country: US (occurrence: US)
  Receive Date: 20241018
  Receipt Date: 20241114
  Transmission Date: 20250115
  Serious: Yes (Hospitalization, Other)
  Sender: TG THERAPEUTICS
  Company Number: US-TG THERAPEUTICS INC.-TGT004105

PATIENT

DRUGS (9)
  1. BRIUMVI [Suspect]
     Active Substance: UBLITUXIMAB-XIIY
     Indication: Multiple sclerosis
     Dosage: UNK
     Route: 042
     Dates: start: 20240402, end: 20240402
  2. BRIUMVI [Suspect]
     Active Substance: UBLITUXIMAB-XIIY
     Dosage: 450 MILLIGRAM, Q6M
     Route: 042
     Dates: start: 20240418, end: 20240418
  3. TEGRETOL [Concomitant]
     Active Substance: CARBAMAZEPINE
     Indication: Bipolar disorder
     Dosage: TAKE 1/2 TABLET TWICE A DAY FOR 3 DAYS AND THEN 1 TABLET TWICE A DAY
     Route: 048
     Dates: start: 20240823
  4. VITAMINS [Concomitant]
     Active Substance: VITAMINS
     Indication: Product used for unknown indication
     Dosage: UNK
  5. VITAMIN B12 [Concomitant]
     Active Substance: CYANOCOBALAMIN
     Indication: Product used for unknown indication
     Dosage: 1000 MCG/ML, ONCE WEEKLY FOR 4 WEEKS AND ONCE A MONTH AS MAINTENANCE DOSE THEREAFTER
     Route: 030
     Dates: start: 20230313
  6. VITAMIN D2 [Concomitant]
     Active Substance: ERGOCALCIFEROL
     Indication: Product used for unknown indication
     Dosage: 1250 MICROGRAM, ONCE EVERY WEEK
     Route: 048
     Dates: start: 20240507
  7. CANNABIS SATIVA SUBSP. INDICA TOP [Concomitant]
     Active Substance: CANNABIS SATIVA SUBSP. INDICA TOP
     Indication: Product used for unknown indication
  8. IBUPROFEN [Concomitant]
     Active Substance: IBUPROFEN
     Indication: Product used for unknown indication
     Dosage: 800 MILLIGRAM, Q8HR, PRN
     Route: 048
     Dates: start: 20130827
  9. VIAGRA [Concomitant]
     Active Substance: SILDENAFIL CITRATE
     Indication: Product used for unknown indication
     Dosage: 2 TABLETS ONCE A DAY
     Route: 048
     Dates: start: 20240319

REACTIONS (14)
  - Encephalopathy [Unknown]
  - CSF test abnormal [Recovering/Resolving]
  - Deep vein thrombosis [Unknown]
  - Aphasia [Unknown]
  - Asthenia [Unknown]
  - Pleocytosis [Recovering/Resolving]
  - Liver function test increased [Unknown]
  - Hyponatraemia [Unknown]
  - Tachycardia [Unknown]
  - Dysphagia [Unknown]
  - Guillain-Barre syndrome [Recovering/Resolving]
  - Pulmonary embolism [Recovering/Resolving]
  - Rash [Unknown]
  - Pyrexia [Unknown]

NARRATIVE: CASE EVENT DATE: 20240101
